FAERS Safety Report 11294508 (Version 1)
Quarter: 2015Q3

REPORT INFORMATION
  Report Type: Spontaneous
  Country: US (occurrence: None)
  Receive Date: 20150722
  Receipt Date: 20150722
  Transmission Date: 20151125
  Serious: Yes (Death, Hospitalization)
  Sender: FDA-Public Use
  Company Number: None

PATIENT
  Age: 5 Year
  Sex: Female
  Weight: 16.5 kg

DRUGS (6)
  1. METHOTREXATE [Suspect]
     Active Substance: METHOTREXATE
     Route: 037
     Dates: end: 20150702
  2. VINCRISTINE SULFATE. [Suspect]
     Active Substance: VINCRISTINE SULFATE
     Dates: end: 20150716
  3. CYTARABINE. [Suspect]
     Active Substance: CYTARABINE
     Route: 037
     Dates: end: 20150625
  4. ONCASPAR [Suspect]
     Active Substance: PEGASPARGASE
     Dosage: 1675 UNIT
     Dates: end: 20150628
  5. DEXAMETHASONE. [Suspect]
     Active Substance: DEXAMETHASONE
     Dates: end: 20150720
  6. LEUCOVORIN CALCIUM. [Suspect]
     Active Substance: LEUCOVORIN CALCIUM
     Dates: end: 20150705

REACTIONS (10)
  - Nuclear magnetic resonance imaging brain abnormal [None]
  - Cellulitis [None]
  - Brain injury [None]
  - Pulseless electrical activity [None]
  - Left ventricular dysfunction [None]
  - Seizure [None]
  - Cardiac arrest [None]
  - Septic shock [None]
  - Hypoxia [None]
  - Cerebral ischaemia [None]

NARRATIVE: CASE EVENT DATE: 20150709
